FAERS Safety Report 5656678-8 (Version None)
Quarter: 2008Q1

REPORT INFORMATION
  Report Type: 
  Country: None (occurrence: None)
  Receive Date: 20080306
  Receipt Date: 20080306
  Transmission Date: 20080703
  Serious: Yes (Life-Threatening)
  Sender: FDA-Public Use
  Company Number: None

PATIENT
  Sex: Female
  Weight: 81.9 kg

DRUGS (1)
  1. ORENCIA [Suspect]
     Indication: RHEUMATOID ARTHRITIS
     Dosage: 750 MG EVERY 4 WEEKS IV DRIP
     Route: 041
     Dates: start: 20071011, end: 20071227

REACTIONS (7)
  - BREAST CANCER METASTATIC [None]
  - DYSPNOEA [None]
  - METASTASES TO BONE [None]
  - METASTASES TO LIVER [None]
  - METASTASES TO LUNG [None]
  - NAUSEA [None]
  - WHEEZING [None]
